FAERS Safety Report 5265455-1 (Version None)
Quarter: 2007Q1

REPORT INFORMATION
  Report Type: 
  Country: None (occurrence: None)
  Receive Date: 20070314
  Receipt Date: 20070228
  Transmission Date: 20070707
  Serious: Yes (Hospitalization)
  Sender: FDA-Public Use
  Company Number: US-ELI_LILLY_AND_COMPANY-US200702005222

PATIENT
  Age: 84 Year
  Sex: Male

DRUGS (23)
  1. CYMBALTA [Suspect]
     Indication: DEPRESSION
     Dosage: 60 MG, DAILY (1/D)
  2. NEXIUM [Concomitant]
     Dosage: 40 MG, DAILY (1/D)
  3. PHENERGAN HCL [Concomitant]
     Dosage: 12.5 MG, EVERY 6 HRS
  4. SENOKOT /USA/ [Concomitant]
     Dosage: 1 D/F, 2/D
  5. TYLENOL /USA/ [Concomitant]
     Dosage: 650 MG, EVERY 4 HRS
  6. DARVOCET [Concomitant]
     Dosage: 1 D/F, EVERY 4 HRS
  7. RAZADYNE ER [Concomitant]
     Dosage: 16 MG, DAILY (1/D)
  8. HYDRALAZINE HCL [Concomitant]
     Dosage: 25 MG, EVERY 8 HRS
  9. MULTI-VITAMIN [Concomitant]
     Dosage: 1 D/F, DAILY (1/D)
  10. DETROL /USA/ [Concomitant]
     Dosage: 4 MG, DAILY (1/D)
  11. ALBUTEROL [Concomitant]
     Dosage: UNK, 4/D
  12. ALBUTEROL [Concomitant]
     Dosage: UNK, AS NEEDED
  13. ATROVENT [Concomitant]
     Dosage: UNK, 4/D
  14. ATROVENT [Concomitant]
     Dosage: UNK, AS NEEDED
  15. DILTIAZEM [Concomitant]
     Dosage: 30 MG, EVERY 6 HRS
  16. WARFARIN SODIUM [Concomitant]
     Dosage: 3 MG, DAILY (1/D)
  17. K-DUR 10 [Concomitant]
     Dosage: 20 MBQ, 2/D
  18. LOPRESSOR [Concomitant]
     Dosage: 50 MG, 2/D
  19. LISINOPRIL [Concomitant]
     Dosage: 10 MG, 2/D
  20. ZOSYN [Concomitant]
     Dosage: 3.375 G, EVERY 6 HRS
  21. LASIX [Concomitant]
     Dosage: 40 MG, DAILY (1/D)
  22. VANCOMYCIN HYDROCHLORIDE [Concomitant]
     Dosage: 1 G, DAILY (1/D)
  23. OXYGEN [Concomitant]

REACTIONS (3)
  - CARDIAC FAILURE CONGESTIVE [None]
  - DYSPHAGIA [None]
  - PNEUMONIA [None]
